FAERS Safety Report 10140139 (Version 1)
Quarter: 2014Q2

REPORT INFORMATION
  Report Type: Spontaneous
  Country: FR (occurrence: FR)
  Receive Date: 20140429
  Receipt Date: 20140429
  Transmission Date: 20141212
  Serious: Yes (Life-Threatening, Hospitalization, Other)
  Sender: FDA-Public Use
  Company Number: FR-PFIZER INC-2014113357

PATIENT
  Age: 85 Year
  Sex: Female

DRUGS (6)
  1. XANAX [Suspect]
     Dosage: 0.5 MG, 1X/DAY
     Route: 048
     Dates: start: 201312
  2. SEROPLEX [Suspect]
     Dosage: 10 MG, 1X/DAY
     Route: 048
     Dates: start: 201312, end: 20140404
  3. PLAVIX [Concomitant]
     Dosage: UNK
  4. STAGID [Concomitant]
     Dosage: UNK
  5. PRITOR [Concomitant]
     Dosage: UNK
  6. ARICEPT [Concomitant]
     Dosage: UNK

REACTIONS (6)
  - Electrocardiogram QT prolonged [Recovered/Resolved]
  - Ventricular fibrillation [Recovered/Resolved]
  - Torsade de pointes [Recovered/Resolved]
  - Hypokalaemia [Unknown]
  - Fall [Recovered/Resolved]
  - Cardio-respiratory arrest [Recovered/Resolved]
